FAERS Safety Report 20638190 (Version 3)
Quarter: 2022Q2

REPORT INFORMATION
  Report Type: Spontaneous
  Country: US (occurrence: US)
  Receive Date: 20220325
  Receipt Date: 20220401
  Transmission Date: 20220720
  Serious: No
  Sender: FDA-Public Use
  Company Number: US-AMGEN-USASP2022052766

PATIENT

DRUGS (1)
  1. CORLANOR [Suspect]
     Active Substance: IVABRADINE HYDROCHLORIDE
     Indication: Cardiac failure
     Dosage: 5 MILLIGRAM, BID
     Route: 048
     Dates: start: 20220322

REACTIONS (1)
  - Nothing by mouth order [Unknown]
